FAERS Safety Report 16106770 (Version 2)
Quarter: 2019Q2

REPORT INFORMATION
  Report Type: Report from Study
  Country: US (occurrence: US)
  Receive Date: 20190322
  Receipt Date: 20190607
  Transmission Date: 20190711
  Serious: Yes (Hospitalization, Other)
  Sender: FDA-Public Use
  Company Number: US-MALLINCKRODT-T201902415

PATIENT
  Sex: Male

DRUGS (3)
  1. REPOSITORY CORTICOTROPIN INJECTION [Suspect]
     Active Substance: CORTICOTROPIN
     Indication: SYSTEMIC LUPUS ERYTHEMATOSUS
     Dosage: 80 UNITS / 1 ML, ONCE WEEKLY
     Route: 030
     Dates: start: 20190214, end: 2019
  2. PREDNISONE. [Concomitant]
     Active Substance: PREDNISONE
     Indication: PRODUCT USED FOR UNKNOWN INDICATION
     Dosage: 60 MG, UNK
     Route: 065
  3. REPOSITORY CORTICOTROPIN INJECTION [Suspect]
     Active Substance: CORTICOTROPIN
     Dosage: 80 UNITS / 1 ML 2 TIMES PER WEEK THURSDAY/MONDAY
     Route: 030
     Dates: start: 2019, end: 20190426

REACTIONS (7)
  - Immunosuppression [Unknown]
  - Diabetes mellitus [Unknown]
  - Night sweats [Unknown]
  - Injection site discomfort [Unknown]
  - Herpes zoster [Unknown]
  - Flushing [Unknown]
  - Injection site extravasation [Unknown]

NARRATIVE: CASE EVENT DATE: 2019
